FAERS Safety Report 4474792-X (Version None)
Quarter: 2004Q4

REPORT INFORMATION
  Report Type: 
  Country: None (occurrence: None)
  Receive Date: 20041012
  Receipt Date: 20040923
  Transmission Date: 20050328
  Serious: Yes (Hospitalization)
  Sender: FDA-Public Use
  Company Number: A044-002-005206

PATIENT
  Age: 77 Year
  Sex: Female
  Weight: 70 kg

DRUGS (12)
  1. ARICEPT [Suspect]
     Indication: DEMENTIA ALZHEIMER'S TYPE
     Dosage: 5 MG, 1 IN 1 D, ORAL
     Route: 048
     Dates: start: 20010101
  2. CIPRALEX (ESCITALOPRIM) [Suspect]
     Indication: DEPRESSION
     Dosage: 20 MG, 1 IN 1 D, ORAL
     Route: 048
     Dates: start: 20010101, end: 20040531
  3. DIGITOXIN INJ [Suspect]
     Indication: ATRIAL FIBRILLATION
     Dosage: 0.07 MG 5X WEEKLY, ORAL
     Route: 048
     Dates: start: 19940101, end: 20040531
  4. VERAPAMIL [Suspect]
     Indication: ATRIAL FIBRILLATION
     Dosage: 80 MG, 1 IN 1 D, ORAL
     Route: 048
     Dates: start: 20010101, end: 20040531
  5. ALDACTONE [Suspect]
     Indication: HYPERTENSION
     Dosage: 25 MG, 1 IN 1 D, ORAL
     Route: 048
     Dates: start: 19990101, end: 20040531
  6. BEXTRA [Suspect]
     Indication: BACK PAIN
     Dosage: 20 MG, 1 IN 1 D, ORAL
     Route: 048
     Dates: start: 20040405, end: 20040415
  7. ENALAPRIL MALEATE [Suspect]
     Indication: HYPERTENSION
     Dosage: 10 MG, 1 IN 1 D, ORAL
     Route: 048
     Dates: start: 19990101, end: 20040531
  8. FUROSEMIDE [Suspect]
     Indication: HYPERTENSION
     Dosage: 40 MG, 1 IN 1 D, ORAL
     Route: 048
     Dates: start: 19990101
  9. ISCOVER (CLOPIDOGREL SULFATE) [Suspect]
     Indication: THROMBOSIS PROPHYLAXIS
     Dosage: 75 MG, 1 IN 1 D, ORAL
     Route: 048
     Dates: start: 20010101
  10. ACTRAPIDE (INSULIN HUMAN) [Concomitant]
  11. LIPON ACID (ALPHA-LIPON ACID) [Concomitant]
  12. PROTAPHANE (ISOPHANE INSULIN) [Concomitant]

REACTIONS (8)
  - BRADYCARDIA [None]
  - DIZZINESS [None]
  - DRUG INTERACTION [None]
  - GENERAL PHYSICAL HEALTH DETERIORATION [None]
  - HYPERKALAEMIA [None]
  - NAUSEA [None]
  - RENAL FAILURE [None]
  - VOMITING [None]
